FAERS Safety Report 10930614 (Version 1)
Quarter: 2015Q1

REPORT INFORMATION
  Report Type: Spontaneous
  Country: US (occurrence: US)
  Receive Date: 20150319
  Receipt Date: 20150319
  Transmission Date: 20150721
  Serious: Yes (Other)
  Sender: FDA-Public Use
  Company Number: US-JNJFOC-20150303067

PATIENT
  Sex: Female

DRUGS (4)
  1. PAZOPANIB [Suspect]
     Active Substance: PAZOPANIB
     Indication: OVARIAN CANCER METASTATIC
     Route: 065
  2. DOXORUBICIN HYDROCHLORIDE. [Suspect]
     Active Substance: DOXORUBICIN HYDROCHLORIDE
     Indication: OVARIAN CANCER METASTATIC
     Route: 042
  3. PAZOPANIB [Suspect]
     Active Substance: PAZOPANIB
     Indication: OVARIAN CANCER METASTATIC
     Route: 065
  4. DOXORUBICIN HYDROCHLORIDE. [Suspect]
     Active Substance: DOXORUBICIN HYDROCHLORIDE
     Indication: OVARIAN CANCER METASTATIC
     Route: 042

REACTIONS (21)
  - Thrombocytopenia [Unknown]
  - Diarrhoea [Unknown]
  - Ecchymosis [Unknown]
  - Hypertension [Unknown]
  - Fatigue [Unknown]
  - Hyperglycaemia [Unknown]
  - Rash [Unknown]
  - Skin exfoliation [Unknown]
  - Neutropenia [Unknown]
  - Leukopenia [Unknown]
  - Mucosal inflammation [Unknown]
  - Decreased appetite [Unknown]
  - Dyspnoea [Unknown]
  - Proteinuria [Unknown]
  - Aspartate aminotransferase increased [Unknown]
  - Vomiting [Unknown]
  - Anaemia [Unknown]
  - Nausea [Unknown]
  - Palmar-plantar erythrodysaesthesia syndrome [Unknown]
  - Gingival bleeding [Unknown]
  - Epistaxis [Unknown]
